FAERS Safety Report 18436764 (Version 2)
Quarter: 2020Q4

REPORT INFORMATION
  Report Type: Spontaneous
  Country: US (occurrence: US)
  Receive Date: 20201028
  Receipt Date: 20201104
  Transmission Date: 20210114
  Serious: Yes (Hospitalization, Other)
  Sender: FDA-Public Use
  Company Number: US-IBIGEN-2020.09459

PATIENT
  Age: 64 Year
  Sex: Male

DRUGS (1)
  1. PIPERACILLIN AND TAZOBACTAM [Suspect]
     Active Substance: PIPERACILLIN SODIUM\TAZOBACTAM SODIUM
     Indication: EVIDENCE BASED TREATMENT

REACTIONS (22)
  - Venous pressure jugular increased [Recovering/Resolving]
  - Pulmonary oedema [Recovering/Resolving]
  - Blood creatinine increased [Recovering/Resolving]
  - Pleural effusion [Recovering/Resolving]
  - Ejection fraction decreased [Recovering/Resolving]
  - Right ventricular dysfunction [Recovering/Resolving]
  - Drug hypersensitivity [Recovering/Resolving]
  - Chest pain [Recovering/Resolving]
  - Brain natriuretic peptide increased [Recovering/Resolving]
  - Blood urea increased [Recovering/Resolving]
  - Hypersensitivity myocarditis [Recovering/Resolving]
  - Sinus tachycardia [Recovering/Resolving]
  - Troponin increased [Recovering/Resolving]
  - Respiratory distress [Recovering/Resolving]
  - Rash maculo-papular [Recovering/Resolving]
  - Crepitations [Recovering/Resolving]
  - Electrocardiogram QRS complex shortened [Recovering/Resolving]
  - Electrocardiogram T wave abnormal [Recovering/Resolving]
  - Pericardial effusion [Recovering/Resolving]
  - Intracardiac pressure increased [Recovering/Resolving]
  - Dyspnoea [Recovering/Resolving]
  - Left ventricular dysfunction [Recovering/Resolving]
